FAERS Safety Report 25612121 (Version 1)
Quarter: 2025Q3

REPORT INFORMATION
  Report Type: Report from Study
  Country: JP (occurrence: JP)
  Receive Date: 20250728
  Receipt Date: 20250728
  Transmission Date: 20251020
  Serious: Yes (Life-Threatening, Disabling, Other)
  Sender: EISAI
  Company Number: JP-Eisai-202505193_LEN-EC_P_1

PATIENT
  Sex: Female

DRUGS (1)
  1. LENVIMA [Suspect]
     Active Substance: LENVATINIB
     Indication: Endometrial cancer recurrent
     Dosage: DOSE UNKNOWN

REACTIONS (2)
  - Cerebrovascular accident [Recovered/Resolved with Sequelae]
  - Hypertension [Recovering/Resolving]

NARRATIVE: CASE EVENT DATE: 20250515
